FAERS Safety Report 18128950 (Version 5)
Quarter: 2022Q1

REPORT INFORMATION
  Report Type: Spontaneous
  Country: US (occurrence: US)
  Receive Date: 20200810
  Receipt Date: 20220113
  Transmission Date: 20220424
  Serious: Yes (Other)
  Sender: FDA-Public Use
  Company Number: US-PFIZER INC-2020270293

PATIENT
  Age: 74 Year
  Sex: Male
  Weight: 113.4 kg

DRUGS (8)
  1. INLYTA [Suspect]
     Active Substance: AXITINIB
     Indication: Renal cell carcinoma stage IV
     Dosage: 1 MG
  2. INLYTA [Suspect]
     Active Substance: AXITINIB
     Dosage: 3 MG, 2X/DAY (QUANTITY:60)
  3. INLYTA [Suspect]
     Active Substance: AXITINIB
     Dosage: 1 MG
  4. INLYTA [Suspect]
     Active Substance: AXITINIB
     Dosage: 5 MG, 2X/DAY
     Dates: start: 202005
  5. INLYTA [Suspect]
     Active Substance: AXITINIB
     Dosage: 3 MG, 2X/DAY (REDUCED TO 3 MG TWICE A DAY)
  6. INLYTA [Suspect]
     Active Substance: AXITINIB
     Dosage: 1 MG, 3X/DAY
     Route: 048
  7. INLYTA [Suspect]
     Active Substance: AXITINIB
     Dosage: 3 MG, 1X/DAY
  8. KEYTRUDA [Suspect]
     Active Substance: PEMBROLIZUMAB
     Dosage: UNK

REACTIONS (12)
  - Cardiac failure [Unknown]
  - Hypothyroidism [Unknown]
  - Pain in extremity [Unknown]
  - Blister [Unknown]
  - Pain of skin [Unknown]
  - Dermatitis [Unknown]
  - Inflammation [Unknown]
  - Erythema [Unknown]
  - Extrasystoles [Unknown]
  - Gait disturbance [Unknown]
  - Glycosylated haemoglobin increased [Unknown]
  - Neoplasm progression [Unknown]

NARRATIVE: CASE EVENT DATE: 20200601
